FAERS Safety Report 11740277 (Version 2)
Quarter: 2015Q4

REPORT INFORMATION
  Report Type: Spontaneous
  Country: US (occurrence: US)
  Receive Date: 20151110
  Receipt Date: 20151120
  Transmission Date: 20160304
  Serious: No
  Sender: FDA-Public Use
  Company Number: US-ELI_LILLY_AND_COMPANY-US201207001452

PATIENT
  Age: 76 Year
  Sex: Female

DRUGS (4)
  1. VITAMINS [Concomitant]
     Active Substance: VITAMINS
  2. SPLENDA [Concomitant]
  3. FORTEO [Suspect]
     Active Substance: TERIPARATIDE
     Indication: OSTEOPOROSIS
     Dosage: 20 UG, QD
     Route: 065
     Dates: start: 201201
  4. FORTEO [Suspect]
     Active Substance: TERIPARATIDE
     Dosage: 20 UG, QD
     Route: 065
     Dates: end: 201208

REACTIONS (10)
  - Muscle spasms [Unknown]
  - Tendon disorder [Recovering/Resolving]
  - Arthralgia [Recovering/Resolving]
  - Pain in extremity [Recovering/Resolving]
  - Muscle strain [Recovering/Resolving]
  - Mobility decreased [Recovering/Resolving]
  - Muscle spasms [Recovering/Resolving]
  - Arthritis [Unknown]
  - Arthralgia [Unknown]
  - Musculoskeletal disorder [Recovering/Resolving]

NARRATIVE: CASE EVENT DATE: 201207
